FAERS Safety Report 9552808 (Version 1)
Quarter: 2013Q3

REPORT INFORMATION
  Report Type: Spontaneous
  Country: CA (occurrence: US)
  Receive Date: 20130925
  Receipt Date: 20130925
  Transmission Date: 20140515
  Serious: No
  Sender: FDA-Public Use
  Company Number: CA-PURDUE-USA-2013-0100303

PATIENT
  Sex: Male
  Weight: 79.4 kg

DRUGS (8)
  1. MORPHINE SULFATE (SIMILAR TO NDA 19-516) [Suspect]
     Indication: INJURY
     Dosage: UNK
     Route: 048
     Dates: end: 2000
  2. FLOVENT [Concomitant]
     Indication: ASTHMA
     Dosage: UNK
  3. FLOVENT [Concomitant]
     Indication: EMPHYSEMA
  4. VENTOLIN                           /00139501/ [Concomitant]
     Indication: ASTHMA
     Dosage: UNK
  5. VENTOLIN                           /00139501/ [Concomitant]
     Indication: EMPHYSEMA
  6. OXYCOCET [Concomitant]
     Indication: INTERVERTEBRAL DISC DEGENERATION
     Dosage: UNK
     Route: 048
  7. OXYCOCET [Concomitant]
     Indication: SCOLIOSIS
  8. OXYCOCET [Concomitant]
     Indication: SCIATICA

REACTIONS (1)
  - Drug ineffective [Unknown]
